FAERS Safety Report 4991712-X (Version None)
Quarter: 2006Q2

REPORT INFORMATION
  Report Type: 
  Country: None (occurrence: None)
  Receive Date: 20060504
  Receipt Date: 20060424
  Transmission Date: 20061013
  Serious: Yes (Hospitalization)
  Sender: FDA-Public Use
  Company Number: FR-GLAXOSMITHKLINE-B0421025A

PATIENT
  Age: 1 Day
  Sex: Male

DRUGS (5)
  1. CLAMOXYL [Suspect]
     Indication: STREPTOCOCCAL INFECTION
     Dosage: 3G PER DAY
     Dates: start: 20060203
  2. UNSPECIFIED DRUG [Suspect]
     Dates: end: 20060208
  3. LOVENOX [Suspect]
  4. ADALAT [Suspect]
     Dosage: 20MG THREE TIMES PER DAY
     Dates: start: 20060206, end: 20060206
  5. CELESTONE [Concomitant]
     Indication: PRENATAL CARE
     Dates: start: 20060203, end: 20060204

REACTIONS (3)
  - DRUG EXPOSURE DURING PREGNANCY [None]
  - HYPOXIA [None]
  - PULMONARY HYPERTENSION [None]
